FAERS Safety Report 18259111 (Version 1)
Quarter: 2020Q3

REPORT INFORMATION
  Report Type: Report from Study
  Country: CA (occurrence: CA)
  Receive Date: 20200911
  Receipt Date: 20200911
  Transmission Date: 20201103
  Serious: Yes (Other)
  Sender: FDA-Public Use
  Company Number: CA-BRISTOL-MYERS SQUIBB COMPANY-BMS-2020-027078

PATIENT
  Sex: Female

DRUGS (3)
  1. ATB (ETHAMBUTOL DIHYDROCHLORIDE) [Suspect]
     Active Substance: ETHAMBUTOL HYDROCHLORIDE
     Indication: CYSTITIS
     Dosage: UNK
     Route: 065
     Dates: start: 202008
  2. ABATACEPT [Suspect]
     Active Substance: ABATACEPT
     Indication: RHEUMATOID ARTHRITIS
     Dosage: 125 MILLIGRAM, QWK
     Route: 058
     Dates: start: 20131216
  3. ATB (ETHAMBUTOL DIHYDROCHLORIDE) [Suspect]
     Active Substance: ETHAMBUTOL HYDROCHLORIDE
     Indication: KIDNEY INFECTION

REACTIONS (7)
  - Kidney infection [Unknown]
  - Cystitis [Unknown]
  - Lip neoplasm malignant stage unspecified [Unknown]
  - Female genital tract fistula [Unknown]
  - Urine odour abnormal [Unknown]
  - Dysuria [Unknown]
  - Peripheral swelling [Unknown]
